FAERS Safety Report 8083661-8 (Version None)
Quarter: 2012Q1

REPORT INFORMATION
  Report Type: 
  Country: None (occurrence: None)
  Receive Date: 20120127
  Receipt Date: 20110110
  Transmission Date: 20120608
  Serious: No
  Sender: FDA-Public Use
  Company Number: US-ABBOTT-11P-163-0696777-00

PATIENT
  Sex: Male

DRUGS (1)
  1. HUMIRA [Suspect]
     Indication: CROHN'S DISEASE
     Dates: start: 20070101

REACTIONS (6)
  - WEIGHT INCREASED [None]
  - INJECTION SITE PAIN [None]
  - URTICARIA [None]
  - TINNITUS [None]
  - PSORIASIS [None]
  - GINGIVAL RECESSION [None]
